FAERS Safety Report 24224266 (Version 1)
Quarter: 2024Q3

REPORT INFORMATION
  Report Type: Spontaneous
  Country: US (occurrence: None)
  Receive Date: 20240818
  Receipt Date: 20240818
  Transmission Date: 20241017
  Serious: Yes (Disabling)
  Sender: Public
  Company Number: None

PATIENT
  Age: 69 Year
  Sex: Female
  Weight: 60.75 kg

DRUGS (7)
  1. FLUCONAZOLE [Suspect]
     Active Substance: FLUCONAZOLE
     Indication: Vulvovaginal mycotic infection
     Dosage: 1 TABLET DAILY ORAL
     Route: 048
     Dates: start: 20240123, end: 20240125
  2. AZITHROMYCIN [Suspect]
     Active Substance: AZITHROMYCIN
     Indication: Ear infection
     Dates: start: 20240123, end: 20240127
  3. LEVOTHYROXINE [Concomitant]
  4. valacyclovir [Concomitant]
  5. CALCIUM [Concomitant]
  6. MAGNESIUM [Concomitant]
  7. VITAMINS [Concomitant]
     Active Substance: VITAMINS

REACTIONS (7)
  - Ear discomfort [None]
  - Hypoacusis [None]
  - Hyperacusis [None]
  - Deafness unilateral [None]
  - Diplacusis [None]
  - Endolymphatic hydrops [None]
  - Ototoxicity [None]

NARRATIVE: CASE EVENT DATE: 20240126
